FAERS Safety Report 5325939-4 (Version None)
Quarter: 2007Q2

REPORT INFORMATION
  Report Type: 
  Country: None (occurrence: None)
  Receive Date: 20070514
  Receipt Date: 20070514
  Transmission Date: 20071010
  Serious: Yes (Other)
  Sender: FDA-Public Use
  Company Number: None

PATIENT
  Age: 48 Year
  Sex: Female
  Weight: 66.2252 kg

DRUGS (3)
  1. METHYLIN [Suspect]
     Indication: ATTENTION DEFICIT/HYPERACTIVITY DISORDER
     Dosage: 20MG QID ORAL
     Route: 048
     Dates: start: 20070130
  2. METHYLIN [Suspect]
     Indication: NARCOLEPSY
     Dosage: 20MG QID ORAL
     Route: 048
     Dates: start: 20070130
  3. METHYLPHENALINE [Suspect]
     Dates: start: 20070407

REACTIONS (5)
  - AGGRESSION [None]
  - AGITATION [None]
  - DEPRESSION [None]
  - DISTURBANCE IN ATTENTION [None]
  - DRUG EFFECT DECREASED [None]
